FAERS Safety Report 21697750 (Version 1)
Quarter: 2022Q4

REPORT INFORMATION
  Report Type: Report from Study
  Country: US (occurrence: US)
  Receive Date: 20221208
  Receipt Date: 20221208
  Transmission Date: 20230112
  Serious: No
  Sender: FDA-Public Use
  Company Number: US-ABBVIE-22K-163-4480410-00

PATIENT
  Age: 63 Year
  Weight: 70.306 kg

DRUGS (1)
  1. SKYRIZI [Suspect]
     Active Substance: RISANKIZUMAB-RZAA
     Indication: Psoriasis
     Route: 058

REACTIONS (6)
  - Hepatic steatosis [Recovering/Resolving]
  - Tooth extraction [Unknown]
  - Feeling abnormal [Unknown]
  - Hypertension [Recovering/Resolving]
  - Psoriasis [Unknown]
  - Arthropathy [Unknown]

NARRATIVE: CASE EVENT DATE: 20220801
